FAERS Safety Report 5026580-3 (Version None)
Quarter: 2006Q2

REPORT INFORMATION
  Report Type: 
  Country: None (occurrence: None)
  Receive Date: 20060615
  Receipt Date: 20060607
  Transmission Date: 20061013
  Serious: Yes (Other)
  Sender: FDA-Public Use
  Company Number: JP-ROCHE-451183

PATIENT
  Age: 60 Year
  Sex: Male

DRUGS (5)
  1. MYCOPHENOLATE MOFETIL [Suspect]
     Route: 048
  2. EPOGEN [Suspect]
     Indication: DRUG USE FOR UNKNOWN INDICATION
     Dosage: DOSE INCREASED
     Route: 065
  3. EPOGEN [Suspect]
     Dosage: DOSE INCREASED
     Route: 065
  4. EPOGEN [Suspect]
     Route: 065
  5. IMMUNOSUPPRESSANT NOS [Concomitant]
     Route: 065

REACTIONS (1)
  - APLASIA PURE RED CELL [None]
